FAERS Safety Report 6602815-8 (Version None)
Quarter: 2010Q1

REPORT INFORMATION
  Report Type: 
  Country: None (occurrence: None)
  Receive Date: 20100226
  Receipt Date: 20100215
  Transmission Date: 20100710
  Serious: Yes (Hospitalization)
  Sender: FDA-Public Use
  Company Number: US-BIOGENIDEC-2010BI000978

PATIENT
  Age: 34 Year
  Sex: Female

DRUGS (2)
  1. TYSABRI [Suspect]
     Indication: MULTIPLE SCLEROSIS
     Route: 042
     Dates: start: 20091001
  2. DILANTIN [Concomitant]
     Indication: CONVULSION

REACTIONS (4)
  - CONFUSIONAL STATE [None]
  - CONVULSION [None]
  - FATIGUE [None]
  - LETHARGY [None]
